FAERS Safety Report 7135200-3 (Version None)
Quarter: 2010Q4

REPORT INFORMATION
  Report Type: 
  Country: None (occurrence: None)
  Receive Date: 20101203
  Receipt Date: 20101122
  Transmission Date: 20110411
  Serious: No
  Sender: FDA-Public Use
  Company Number: US-PFIZER INC-2010156673

PATIENT
  Sex: Female

DRUGS (2)
  1. XALATAN [Suspect]
     Dosage: UNK
  2. BORATE/HYDROXYPROPYL GUAR/POLYETHYLENE GLYCOL/PROPYLENE GLYCOL [Concomitant]

REACTIONS (1)
  - EYE IRRITATION [None]
